FAERS Safety Report 8089036-X (Version None)
Quarter: 2012Q1

REPORT INFORMATION
  Report Type: 
  Country: None (occurrence: None)
  Receive Date: 20120128
  Receipt Date: 20110812
  Transmission Date: 20120608
  Serious: No
  Sender: FDA-Public Use
  Company Number: PR-ABBOTT-11P-131-0730296-00

PATIENT
  Sex: Female
  Weight: 68.1 kg

DRUGS (6)
  1. HUMIRA [Suspect]
     Indication: RHEUMATOID ARTHRITIS
     Route: 058
     Dates: start: 20110601
  2. TORADOL [Concomitant]
     Indication: PAIN
     Route: 030
  3. TYLENOL-500 [Concomitant]
     Indication: PAIN
     Route: 048
  4. PREDNISONE TAB [Concomitant]
     Indication: PRODUCT USED FOR UNKNOWN INDICATION
     Route: 048
  5. NORFLEX [Concomitant]
     Indication: PAIN
     Route: 030
  6. ULTRACET [Concomitant]
     Indication: PAIN
     Route: 048

REACTIONS (3)
  - HYPERSENSITIVITY [None]
  - INFLUENZA LIKE ILLNESS [None]
  - ERYTHEMA [None]
